FAERS Safety Report 12865210 (Version 1)
Quarter: 2016Q4

REPORT INFORMATION
  Report Type: Spontaneous
  Country: US (occurrence: US)
  Receive Date: 20161020
  Receipt Date: 20161020
  Transmission Date: 20170207
  Serious: No
  Sender: FDA-Public Use
  Company Number: None

PATIENT

DRUGS (5)
  1. TOUJEO [Suspect]
     Active Substance: INSULIN GLARGINE
  2. TRAJENTA [Suspect]
     Active Substance: LINAGLIPTIN
  3. TANZEUM [Suspect]
     Active Substance: ALBIGLUTIDE
  4. TRULICITY [Suspect]
     Active Substance: DULAGLUTIDE
  5. TRESIBA [Suspect]
     Active Substance: INSULIN DEGLUDEC

REACTIONS (3)
  - Product name confusion [None]
  - Product dosage form confusion [None]
  - Product label confusion [None]
